FAERS Safety Report 16445320 (Version 2)
Quarter: 2019Q4

REPORT INFORMATION
  Report Type: Spontaneous
  Country: US (occurrence: US)
  Receive Date: 20190618
  Receipt Date: 20191018
  Transmission Date: 20200122
  Serious: Yes (Other)
  Sender: FDA-Public Use
  Company Number: US-TEVA-2019-US-1062745

PATIENT
  Sex: Female

DRUGS (1)
  1. JUNEL FE 1.5/30 [Suspect]
     Active Substance: ETHINYL ESTRADIOL\NORETHINDRONE ACETATE
     Indication: CONTRACEPTION
     Route: 065
     Dates: start: 20180508, end: 20190606

REACTIONS (9)
  - Hypoaesthesia [Recovered/Resolved]
  - Haemorrhage [Unknown]
  - Near death experience [Unknown]
  - Poor quality sleep [Recovered/Resolved]
  - Decreased appetite [Recovered/Resolved]
  - Depression [Recovered/Resolved]
  - Suspected counterfeit product [Unknown]
  - Ill-defined disorder [Unknown]
  - Pain [Recovered/Resolved]
